FAERS Safety Report 11980821 (Version 1)
Quarter: 2016Q1

REPORT INFORMATION
  Report Type: Spontaneous
  Country: DE (occurrence: DE)
  Receive Date: 20160129
  Receipt Date: 20160129
  Transmission Date: 20160526
  Serious: Yes (Hospitalization, Congenital Anomaly, Other)
  Sender: FDA-Public Use
  Company Number: DE-TEVA-627924GER

PATIENT
  Age: 1 Day
  Sex: Male
  Weight: 1.47 kg

DRUGS (8)
  1. ASS 100 [Concomitant]
     Active Substance: ASPIRIN
     Indication: COAGULOPATHY
     Dosage: 100 MILLIGRAM DAILY;
     Route: 064
  2. DIAZEPAM. [Concomitant]
     Active Substance: DIAZEPAM
     Indication: DEPRESSION
     Route: 064
  3. PREDNISOLON [Concomitant]
     Active Substance: PREDNISOLONE
     Indication: COAGULOPATHY
     Dosage: 10 MILLIGRAM DAILY;
     Route: 064
  4. FEMIBION SCHWANGERSCHAFT 1 [Concomitant]
     Indication: PROPHYLAXIS OF NEURAL TUBE DEFECT
     Dosage: .8 MILLIGRAM DAILY;
     Route: 064
     Dates: start: 20141023, end: 20150609
  5. CLEXANE 20 [Concomitant]
     Indication: COAGULOPATHY
     Dosage: 20 MILLIGRAM DAILY;
     Route: 064
  6. VENLAFAXINE [Suspect]
     Active Substance: VENLAFAXINE HYDROCHLORIDE
     Indication: DEPRESSION
     Dosage: 75 MILLIGRAM DAILY;
     Route: 064
     Dates: start: 20141023, end: 20150609
  7. TRENTAL [Suspect]
     Active Substance: PENTOXIFYLLINE
     Indication: COAGULOPATHY
     Dosage: 800 MILLIGRAM DAILY;
     Route: 064
  8. EUTHYROX 50 [Concomitant]
     Indication: HYPOTHYROIDISM
     Dosage: 50 MICROGRAM DAILY;
     Route: 064
     Dates: start: 20141023, end: 20150609

REACTIONS (8)
  - Bradycardia neonatal [Recovered/Resolved]
  - Respiratory disorder neonatal [Recovered/Resolved]
  - Caesarean section [None]
  - Atrial septal defect [Not Recovered/Not Resolved]
  - Premature baby [None]
  - Infantile apnoea [Recovered/Resolved]
  - Foetal exposure during pregnancy [Unknown]
  - Maternal drugs affecting foetus [None]

NARRATIVE: CASE EVENT DATE: 20150609
